FAERS Safety Report 12423821 (Version 1)
Quarter: 2016Q2

REPORT INFORMATION
  Report Type: Spontaneous
  Country: US (occurrence: None)
  Receive Date: 20160531
  Receipt Date: 20160531
  Transmission Date: 20160815
  Serious: No
  Sender: FDA-Public Use
  Company Number: None

PATIENT
  Age: 16 Year
  Sex: Female
  Weight: 131.6 kg

DRUGS (14)
  1. MERCAPTOPURINE (PURINETHOL) [Concomitant]
  2. HYDROCORTISONE (CORTEF) [Concomitant]
  3. ZOFRAN [Concomitant]
     Active Substance: ONDANSETRON HYDROCHLORIDE
  4. OXYCODONE [Concomitant]
     Active Substance: OXYCODONE
  5. MIRALAX [Concomitant]
     Active Substance: POLYETHYLENE GLYCOL 3350
  6. BACTRIM DS [Concomitant]
     Active Substance: SULFAMETHOXAZOLE\TRIMETHOPRIM
  7. METHOTREXATE [Suspect]
     Active Substance: METHOTREXATE
     Indication: ACUTE LYMPHOCYTIC LEUKAEMIA
     Route: 040
     Dates: start: 20151009, end: 20160519
  8. HYDROCORTISONE SODIUM SUCCINATE PF (SOLU-CORTEF) [Concomitant]
  9. TYLENOL [Concomitant]
     Active Substance: ACETAMINOPHEN
  10. DIPHENHYDRAMINE (BENADRYL) [Concomitant]
  11. LORAZEPAM (ATIVAN) [Concomitant]
  12. CAFFEINE. [Concomitant]
     Active Substance: CAFFEINE
  13. ZANTAC [Concomitant]
     Active Substance: RANITIDINE HYDROCHLORIDE
  14. SENNA-DOCUSATE (SENOKOT S) [Concomitant]

REACTIONS (3)
  - Vomiting [None]
  - Nausea [None]
  - Blood creatinine increased [None]

NARRATIVE: CASE EVENT DATE: 20160214
